FAERS Safety Report 6998004-8 (Version None)
Quarter: 2010Q3

REPORT INFORMATION
  Report Type: 
  Country: None (occurrence: None)
  Receive Date: 20100920
  Receipt Date: 20071203
  Transmission Date: 20110219
  Serious: Yes (Hospitalization, Other)
  Sender: FDA-Public Use
  Company Number: US-ASTRAZENECA-2005UW15691

PATIENT
  Age: 12064 Day
  Sex: Female
  Weight: 143.3 kg

DRUGS (5)
  1. SEROQUEL [Suspect]
     Dosage: 300-600 MG
     Route: 048
     Dates: start: 20010516
  2. GEODON [Concomitant]
     Dosage: TOTAL DAILY DOSE 300 MG
  3. RISPERDAL [Concomitant]
  4. ZYPREXA [Concomitant]
  5. VENLAFAXINE [Concomitant]
     Route: 048
     Dates: start: 20040417

REACTIONS (4)
  - DIABETES MELLITUS [None]
  - DIABETES MELLITUS INADEQUATE CONTROL [None]
  - HYPERGLYCAEMIA [None]
  - TYPE 1 DIABETES MELLITUS [None]
